FAERS Safety Report 5482286-8 (Version None)
Quarter: 2007Q4

REPORT INFORMATION
  Report Type: 
  Country: None (occurrence: None)
  Receive Date: 20071011
  Receipt Date: 20071002
  Transmission Date: 20080405
  Serious: Yes (Hospitalization)
  Sender: FDA-Public Use
  Company Number: CH-AMGEN-US246630

PATIENT
  Age: 68 Year
  Sex: Female

DRUGS (4)
  1. ENBREL [Suspect]
     Indication: DRUG USE FOR UNKNOWN INDICATION
     Dosage: 50 MG PER WEEK
     Dates: start: 20040701, end: 20070810
  2. ENBREL [Suspect]
     Dosage: 25 MG EVERY 1 TOT
     Dates: start: 20070905, end: 20070916
  3. METHOTREXATE [Suspect]
     Route: 048
     Dates: end: 20070810
  4. FOLIC ACID [Concomitant]

REACTIONS (4)
  - DRUG TOXICITY [None]
  - OBLITERATIVE BRONCHIOLITIS [None]
  - PLEURAL EFFUSION [None]
  - SYSTEMIC LUPUS ERYTHEMATOSUS [None]
